FAERS Safety Report 9366303 (Version 1)
Quarter: 2013Q2

REPORT INFORMATION
  Report Type: Spontaneous
  Country: US (occurrence: US)
  Receive Date: 20130625
  Receipt Date: 20130625
  Transmission Date: 20140414
  Serious: No
  Sender: FDA-Public Use
  Company Number: US-GLAXOSMITHKLINE-A0988777A

PATIENT
  Age: 68 Year
  Sex: Female

DRUGS (2)
  1. VERAMYST [Suspect]
     Indication: RHINITIS ALLERGIC
     Dosage: 1SPR TWICE PER DAY
     Route: 045
     Dates: start: 200908, end: 20120720
  2. NO CONCURRENT MEDICATION [Concomitant]

REACTIONS (4)
  - Scar [Not Recovered/Not Resolved]
  - Nasal discomfort [Not Recovered/Not Resolved]
  - Dry mouth [Recovered/Resolved]
  - Hyperkeratosis [Unknown]
